FAERS Safety Report 5748676-0 (Version None)
Quarter: 2008Q2

REPORT INFORMATION
  Report Type: 
  Country: None (occurrence: None)
  Receive Date: 20080521
  Receipt Date: 20080507
  Transmission Date: 20081010
  Serious: Yes (Hospitalization, Other)
  Sender: FDA-Public Use
  Company Number: WAES 0801FRA00008

PATIENT
  Age: 39 Year
  Sex: Male

DRUGS (8)
  1. ISENTRESS [Suspect]
     Indication: HIV INFECTION
     Dosage: 400 MG/BID PO
     Route: 048
     Dates: start: 20070814
  2. ABACAVIR SULFATE/LAMIVUDINE [Suspect]
     Indication: HIV INFECTION
     Dosage: 1 TAB/DAILY PO
     Route: 048
     Dates: start: 20070814
  3. DARUNAVIR [Suspect]
     Indication: HIV INFECTION
     Dosage: 600 MG/BID PO
     Route: 048
     Dates: start: 20070814
  4. RITONAVIR [Suspect]
     Indication: HIV INFECTION
     Dosage: 100 MG/BID PO
     Route: 048
     Dates: start: 20070814
  5. ETRAVIRINE [Suspect]
     Indication: HIV INFECTION
     Dosage: 200 MG/BID PO
     Route: 048
     Dates: start: 20070814
  6. MORPHINE SO4 [Concomitant]
  7. OMEPRAZOLE [Concomitant]
  8. VALACYCLOVIR HCL [Concomitant]

REACTIONS (6)
  - AIDS ENCEPHALOPATHY [None]
  - BLOOD CREATINE PHOSPHOKINASE INCREASED [None]
  - DIZZINESS [None]
  - HEADACHE [None]
  - MEMORY IMPAIRMENT [None]
  - POST PROCEDURAL COMPLICATION [None]
